FAERS Safety Report 10038733 (Version 2)
Quarter: 2014Q2

REPORT INFORMATION
  Report Type: Spontaneous
  Country: US (occurrence: US)
  Receive Date: 20140326
  Receipt Date: 20140409
  Transmission Date: 20141212
  Serious: Yes (Hospitalization)
  Sender: FDA-Public Use
  Company Number: US-LUNDBECK-DKLU1098511

PATIENT
  Age: 8 Month
  Sex: Male

DRUGS (12)
  1. SABRIL (FOR ORAL SOLUTION) [Suspect]
     Indication: INFANTILE SPASMS
     Route: 048
     Dates: start: 20140219
  2. SABRIL (FOR ORAL SOLUTION) [Suspect]
     Indication: CONVULSION
     Route: 048
  3. SABRIL (FOR ORAL SOLUTION) [Suspect]
     Route: 048
  4. SABRIL (FOR ORAL SOLUTION) [Suspect]
     Route: 048
  5. SABRIL (FOR ORAL SOLUTION) [Suspect]
     Route: 048
  6. SABRIL (FOR ORAL SOLUTION) [Suspect]
     Route: 048
  7. SABRIL (FOR ORAL SOLUTION) [Suspect]
     Route: 048
  8. ONFI (ORAL SUSPENSION) [Suspect]
     Indication: CONVULSION
     Route: 048
  9. DIASTAT [Concomitant]
     Indication: CONVULSION
  10. DEPAKENE [Concomitant]
     Indication: PRODUCT USED FOR UNKNOWN INDICATION
     Route: 048
  11. FELBAMATE [Concomitant]
     Indication: PRODUCT USED FOR UNKNOWN INDICATION
     Route: 048
  12. FELBAMATE [Concomitant]
     Route: 048

REACTIONS (4)
  - Respiratory distress [Recovering/Resolving]
  - Convulsion [Recovering/Resolving]
  - Fatigue [Recovering/Resolving]
  - Somnolence [Recovering/Resolving]
